FAERS Safety Report 12535770 (Version 2)
Quarter: 2016Q4

REPORT INFORMATION
  Report Type: Report from Study
  Country: KR (occurrence: KR)
  Receive Date: 20160707
  Receipt Date: 20161219
  Transmission Date: 20170207
  Serious: Yes (Hospitalization)
  Sender: FDA-Public Use
  Company Number: KR-ROCHE-1787920

PATIENT
  Age: 48 Year
  Sex: Female
  Weight: 64.1 kg

DRUGS (39)
  1. TRASTUZUMAB [Suspect]
     Active Substance: TRASTUZUMAB
     Route: 042
     Dates: start: 20160325
  2. TRASTUZUMAB [Suspect]
     Active Substance: TRASTUZUMAB
     Route: 042
     Dates: start: 20160527
  3. DOCETAXEL. [Suspect]
     Active Substance: DOCETAXEL
     Route: 042
     Dates: start: 20160325
  4. DOCETAXEL. [Suspect]
     Active Substance: DOCETAXEL
     Route: 042
     Dates: start: 20160506
  5. DOCETAXEL. [Suspect]
     Active Substance: DOCETAXEL
     Route: 042
     Dates: start: 20160617
  6. SUSPEN ER [Concomitant]
     Dosage: PREMEDICATION FOR NEURALGIA
     Route: 048
     Dates: start: 20160304
  7. ONSERAN [Concomitant]
     Indication: NAUSEA
     Route: 042
     Dates: start: 20160514
  8. PERTUZUMAB [Suspect]
     Active Substance: PERTUZUMAB
     Indication: BREAST CANCER
     Route: 042
     Dates: start: 20160304
  9. PERTUZUMAB [Suspect]
     Active Substance: PERTUZUMAB
     Route: 042
     Dates: start: 20160617
  10. TRASTUZUMAB [Suspect]
     Active Substance: TRASTUZUMAB
     Indication: BREAST CANCER
     Route: 042
     Dates: start: 20160304
  11. EMEND [Concomitant]
     Active Substance: APREPITANT
     Indication: VOMITING
     Route: 048
     Dates: start: 20160605, end: 20160607
  12. SMECTA [Concomitant]
     Active Substance: MONTMORILLONITE
     Indication: DIARRHOEA
     Route: 048
     Dates: start: 20160617, end: 20160617
  13. PERTUZUMAB [Suspect]
     Active Substance: PERTUZUMAB
     Route: 042
     Dates: start: 20160325
  14. TRASTUZUMAB [Suspect]
     Active Substance: TRASTUZUMAB
     Route: 042
     Dates: start: 20160617
  15. DOCETAXEL. [Suspect]
     Active Substance: DOCETAXEL
     Indication: BREAST CANCER
     Route: 042
     Dates: start: 20160304
  16. DEXAMETHASONE. [Concomitant]
     Active Substance: DEXAMETHASONE
     Dosage: PREMEDICATION FOR NEUROPATHY
     Route: 042
     Dates: start: 20160303
  17. NEURONTIN (SOUTH KOREA) [Concomitant]
     Route: 048
     Dates: start: 20160304
  18. TANTUM (SOUTH KOREA) [Concomitant]
     Dosage: PREVENTION OF STOMATITIS
     Route: 050
     Dates: start: 20160304
  19. URSA [Concomitant]
     Indication: ASPARTATE AMINOTRANSFERASE INCREASED
     Route: 048
     Dates: start: 20160425
  20. NEOPLATIN (SOUTH KOREA) [Concomitant]
     Indication: BREAST CANCER
     Route: 042
     Dates: start: 20160304
  21. KYTRIL [Concomitant]
     Active Substance: GRANISETRON HYDROCHLORIDE
     Dosage: PREVENTION FOR NAUSEA
     Route: 048
     Dates: start: 20160305
  22. LEUCOSTIM [Concomitant]
     Active Substance: FILGRASTIM
     Route: 042
     Dates: start: 20160425, end: 20160425
  23. MAXIPIME [Concomitant]
     Active Substance: CEFEPIME HYDROCHLORIDE
     Dosage: PREVENTION OF INFECTION
     Route: 042
     Dates: start: 20160313, end: 20160607
  24. DOCETAXEL. [Suspect]
     Active Substance: DOCETAXEL
     Route: 042
     Dates: start: 20160415
  25. LEUCOSTIM [Concomitant]
     Active Substance: FILGRASTIM
     Route: 042
     Dates: start: 20160313, end: 20160313
  26. KETORAC [Concomitant]
     Indication: FEBRILE NEUTROPENIA
     Route: 042
     Dates: start: 20160304, end: 20160516
  27. PERTUZUMAB [Suspect]
     Active Substance: PERTUZUMAB
     Route: 042
     Dates: start: 20160415
  28. PERTUZUMAB [Suspect]
     Active Substance: PERTUZUMAB
     Route: 042
     Dates: start: 20160506
  29. PERTUZUMAB [Suspect]
     Active Substance: PERTUZUMAB
     Route: 042
     Dates: start: 20160527
  30. TRASTUZUMAB [Suspect]
     Active Substance: TRASTUZUMAB
     Route: 042
     Dates: start: 20160415
  31. DOCETAXEL. [Suspect]
     Active Substance: DOCETAXEL
     Route: 042
     Dates: start: 20160527
  32. SANCUSO [Concomitant]
     Active Substance: GRANISETRON
     Dosage: PREMEDICATION FOR NAUSEA
     Route: 065
     Dates: start: 20160303
  33. NASERON [Concomitant]
     Dosage: PREMEDICATION FOR NAUSEA
     Route: 042
     Dates: start: 20160304
  34. TRASTUZUMAB [Suspect]
     Active Substance: TRASTUZUMAB
     Route: 042
     Dates: start: 20160506
  35. CURAN [Concomitant]
     Active Substance: RANITIDINE HYDROCHLORIDE
     Dosage: PREVENTION FOR URTICARIA
     Route: 048
     Dates: start: 20160304
  36. LEUCOSTIM [Concomitant]
     Active Substance: FILGRASTIM
     Indication: NEUTROPENIA
     Route: 042
     Dates: start: 20160605, end: 20160606
  37. LEUCOSTIM [Concomitant]
     Active Substance: FILGRASTIM
     Route: 042
     Dates: start: 20160626, end: 20160627
  38. LEUCOSTIM [Concomitant]
     Active Substance: FILGRASTIM
     Route: 042
     Dates: start: 20160405, end: 20160405
  39. URSA [Concomitant]
     Indication: ALANINE AMINOTRANSFERASE INCREASED

REACTIONS (3)
  - Asthenia [Recovered/Resolved]
  - Cholecystitis acute [Recovered/Resolved]
  - Febrile neutropenia [Recovered/Resolved]

NARRATIVE: CASE EVENT DATE: 20160312
